FAERS Safety Report 6758341-9 (Version None)
Quarter: 2010Q2

REPORT INFORMATION
  Report Type: 
  Country: None (occurrence: None)
  Receive Date: 20100607
  Receipt Date: 20100528
  Transmission Date: 20101027
  Serious: Yes (Hospitalization, Other)
  Sender: FDA-Public Use
  Company Number: US-ABBOTT-10P-163-0647972-00

PATIENT
  Sex: Female
  Weight: 49.94 kg

DRUGS (2)
  1. LUPRON DEPOT [Suspect]
     Indication: UTERINE LEIOMYOMA
     Route: 058
     Dates: start: 20100415, end: 20100512
  2. CYTOTEC [Suspect]
     Indication: ABORTION INDUCED
     Dates: start: 20100528

REACTIONS (1)
  - ABORTION SPONTANEOUS [None]
